FAERS Safety Report 9530840 (Version 1)
Quarter: 2013Q3

REPORT INFORMATION
  Report Type: Spontaneous
  Country: US (occurrence: None)
  Receive Date: 20130916
  Receipt Date: 20130916
  Transmission Date: 20140515
  Serious: No
  Sender: FDA-Public Use
  Company Number: None

PATIENT
  Age: 72 Year
  Sex: Male
  Weight: 78.5 kg

DRUGS (4)
  1. FLUOROURACIL [Suspect]
     Dosage: FLUROURACIL (2400 MG/M2 IV) TOTAL DOSE GIVEN 4728 MG,
     Dates: start: 20071019, end: 20080709
  2. BEVACIZUMAB [Suspect]
  3. LEUCOVORIN [Suspect]
  4. OXALIPLATIN [Suspect]

REACTIONS (1)
  - Neutropenia [None]
